FAERS Safety Report 21532680 (Version 2)
Quarter: 2022Q4

REPORT INFORMATION
  Report Type: Spontaneous
  Country: FI (occurrence: FI)
  Receive Date: 20221101
  Receipt Date: 20221111
  Transmission Date: 20230112
  Serious: Yes (Death, Other)
  Sender: FDA-Public Use
  Company Number: FI-TAKEDA-2022TEU002374

PATIENT
  Sex: Male

DRUGS (1)
  1. LEUPROLIDE ACETATE [Suspect]
     Active Substance: LEUPROLIDE ACETATE
     Indication: Prostate cancer metastatic
     Dosage: ENANTON DEPOT DUAL 11.25MG
     Route: 065

REACTIONS (3)
  - Prostate cancer metastatic [Fatal]
  - Drug ineffective [Fatal]
  - Loss of personal independence in daily activities [Fatal]

NARRATIVE: CASE EVENT DATE: 20211201
